FAERS Safety Report 4834198-8 (Version None)
Quarter: 2005Q4

REPORT INFORMATION
  Report Type: 
  Country: None (occurrence: None)
  Receive Date: 20051122
  Receipt Date: 20051115
  Transmission Date: 20060501
  Serious: Yes (Disabling)
  Sender: FDA-Public Use
  Company Number: 2005SE06573

PATIENT
  Age: 65 Year
  Sex: Female

DRUGS (3)
  1. AMIAS 32MG TABLETS [Suspect]
     Indication: HYPERTENSION
     Route: 048
     Dates: start: 20050601, end: 20051024
  2. SUMATRIPTAN SUCCINATE [Concomitant]
     Indication: MIGRAINE
     Route: 065
     Dates: start: 20020715
  3. ACETAMINOPHEN [Concomitant]
     Indication: HEADACHE
     Route: 065

REACTIONS (2)
  - ARTHRALGIA [None]
  - JOINT STIFFNESS [None]
